FAERS Safety Report 18686906 (Version 1)
Quarter: 2020Q4

REPORT INFORMATION
  Report Type: Report from Study
  Country: IT (occurrence: IT)
  Receive Date: 20201230
  Receipt Date: 20201230
  Transmission Date: 20210114
  Serious: Yes (Other)
  Sender: FDA-Public Use
  Company Number: IT-RECORDATI RARE DISEASES-2103673

PATIENT
  Age: 64 Year
  Sex: Male

DRUGS (7)
  1. TESTOVIRON [Concomitant]
     Active Substance: TESTOSTERONE
     Route: 058
     Dates: start: 20020101
  2. PASIREOTIDE. [Suspect]
     Active Substance: PASIREOTIDE
     Indication: ACROMEGALY
     Route: 058
     Dates: start: 20170610
  3. SILDENAFIL. [Concomitant]
     Active Substance: SILDENAFIL
     Route: 048
     Dates: start: 2000
  4. TICHE [Concomitant]
     Route: 048
     Dates: start: 20020101
  5. SUSTANON [Concomitant]
     Active Substance: TESTOSTERONE
     Route: 058
     Dates: start: 20190101
  6. URSODEOXYCHOLIC ACID [Concomitant]
     Active Substance: URSODIOL
     Route: 048
     Dates: start: 20181205
  7. CARDIOASPIRIN [Concomitant]
     Active Substance: ASPIRIN
     Route: 048
     Dates: start: 1987

REACTIONS (2)
  - Therapy non-responder [Recovered/Resolved]
  - Hepatic steatosis [Recovered/Resolved]

NARRATIVE: CASE EVENT DATE: 20170919
